FAERS Safety Report 4416764-7 (Version None)
Quarter: 2004Q3

REPORT INFORMATION
  Report Type: 
  Country: None (occurrence: None)
  Receive Date: 20040802
  Receipt Date: 20040720
  Transmission Date: 20050211
  Serious: Yes (Hospitalization, Other)
  Sender: FDA-Public Use
  Company Number: HQWYE296621JUL04

PATIENT
  Age: 14 Year
  Sex: Female

DRUGS (3)
  1. ADVIL [Suspect]
     Indication: INFLUENZA
     Dosage: 2 TABLET 1X PER 1 DAY ORAL
     Route: 048
     Dates: start: 20040616, end: 20040616
  2. ACETAMINOPHEN [Suspect]
     Dates: start: 20040617
  3. NIFLUMIC ACID (NIFLUMIC ACID) [Suspect]
     Dates: start: 20040617

REACTIONS (2)
  - CYTOLYTIC HEPATITIS [None]
  - RASH [None]
